FAERS Safety Report 15325544 (Version 2)
Quarter: 2018Q3

REPORT INFORMATION
  Report Type: Spontaneous
  Country: GB (occurrence: GB)
  Receive Date: 20180828
  Receipt Date: 20180903
  Transmission Date: 20181010
  Serious: Yes (Death, Other)
  Sender: FDA-Public Use
  Company Number: GB-PFIZER INC-2018337931

PATIENT
  Age: 37 Year
  Sex: Male

DRUGS (10)
  1. PHENYTOIN. [Suspect]
     Active Substance: PHENYTOIN
     Dosage: 200 MG, 1X/DAY
  2. ORPHENADRINE [Suspect]
     Active Substance: ORPHENADRINE
     Dosage: 50 MG, 3X/DAY
  3. BACLOFEN. [Suspect]
     Active Substance: BACLOFEN
     Indication: MUSCLE SPASMS
     Dosage: 20 MG, EVERY 6 HOURS
  4. TRIMETHOPRIM. [Suspect]
     Active Substance: TRIMETHOPRIM
     Dosage: 100 MG, 1X/DAY (AT NIGHT)
  5. BACLOFEN. [Suspect]
     Active Substance: BACLOFEN
     Dosage: 20 MG, EVERY 6 HOURS
  6. CHLORPROMAZINE. [Suspect]
     Active Substance: CHLORPROMAZINE
     Dosage: 20 MG, 2X/DAY
  7. BACLOFEN. [Suspect]
     Active Substance: BACLOFEN
     Dosage: 60 MG, 1X/DAY
  8. BACLOFEN. [Suspect]
     Active Substance: BACLOFEN
     Dosage: 20 MG, 3X/DAY
     Dates: start: 1975
  9. PHENYTOIN. [Suspect]
     Active Substance: PHENYTOIN
     Dosage: 300 MG, 1X/DAY (AT NIGHT)
  10. TEMAZEPAM. [Suspect]
     Active Substance: TEMAZEPAM
     Dosage: 20 MG, 1X/DAY

REACTIONS (2)
  - Hallucination, auditory [Recovered/Resolved]
  - Hallucination, olfactory [Unknown]

NARRATIVE: CASE EVENT DATE: 1983
